FAERS Safety Report 16676466 (Version 1)
Quarter: 2019Q3

REPORT INFORMATION
  Report Type: Report from Study
  Country: None (occurrence: CA)
  Receive Date: 20190807
  Receipt Date: 20190807
  Transmission Date: 20191004
  Serious: Yes (Death, Hospitalization, Other)
  Sender: FDA-Public Use
  Company Number: CA-ABBVIE-19K-028-2809490-00

PATIENT
  Sex: Female
  Weight: 71 kg

DRUGS (2)
  1. VENCLEXTA [Suspect]
     Active Substance: VENETOCLAX
     Indication: ACUTE MYELOID LEUKAEMIA
     Route: 048
     Dates: start: 20190510, end: 201906
  2. AZACITIDINE. [Suspect]
     Active Substance: AZACITIDINE
     Indication: PRODUCT USED FOR UNKNOWN INDICATION
     Route: 065

REACTIONS (15)
  - Pulmonary mass [Unknown]
  - Pleural effusion [Unknown]
  - Blast cells [Unknown]
  - Polyneuropathy in malignant disease [Fatal]
  - Acute myeloid leukaemia recurrent [Fatal]
  - Gastrointestinal wall thickening [Unknown]
  - Sepsis [Fatal]
  - Atelectasis [Unknown]
  - Cytopenia [Unknown]
  - Drug ineffective [Unknown]
  - Chest X-ray abnormal [Unknown]
  - Pneumonia [Fatal]
  - Hypotension [Unknown]
  - Red blood cell count increased [Recovering/Resolving]
  - Off label use [Unknown]

NARRATIVE: CASE EVENT DATE: 2019
